FAERS Safety Report 7281830-8 (Version None)
Quarter: 2011Q1

REPORT INFORMATION
  Report Type: 
  Country: None (occurrence: None)
  Receive Date: 20110208
  Receipt Date: 20110203
  Transmission Date: 20110831
  Serious: Yes (Other)
  Sender: FDA-Public Use
  Company Number: CO-PFIZER INC-2011026126

PATIENT
  Age: 90 Year
  Sex: Female

DRUGS (5)
  1. VENLAFAXINE [Suspect]
     Indication: DEPRESSION
     Dosage: 75 MG, 1X/DAY
  2. CALCITRIOL [Concomitant]
     Indication: HYPERCALCAEMIA
     Dosage: 50 MG, 1X/DAY
  3. RIVOTRIL [Concomitant]
     Indication: DEPRESSION
     Dosage: 14 DROPS PM
  4. FOSAMAX [Concomitant]
     Indication: BONE DISORDER
     Dosage: 1 TAB EVERY 8 DAYS
  5. EFFEXOR [Suspect]
     Indication: DEPRESSION
     Dosage: 150 MG, 1X/DAY
     Route: 048
     Dates: start: 20040420

REACTIONS (2)
  - FALL [None]
  - HIP FRACTURE [None]
